FAERS Safety Report 6611949-3 (Version None)
Quarter: 2010Q1

REPORT INFORMATION
  Report Type: 
  Country: None (occurrence: None)
  Receive Date: 20100303
  Receipt Date: 20100222
  Transmission Date: 20100710
  Serious: Yes (Hospitalization, Other)
  Sender: FDA-Public Use
  Company Number: US-ABBOTT-10P-163-0627978-00

PATIENT
  Sex: Female
  Weight: 124.85 kg

DRUGS (14)
  1. HUMIRA [Suspect]
     Indication: PSORIATIC ARTHROPATHY
     Dates: start: 20060112
  2. PREDNISONE [Concomitant]
     Indication: ADRENAL INSUFFICIENCY
  3. PLAQUENIL [Concomitant]
     Indication: SYSTEMIC LUPUS ERYTHEMATOSUS
  4. CYTAMEL [Concomitant]
     Indication: HYPOTHYROIDISM
  5. SYNTHROID [Concomitant]
     Indication: HYPOTHYROIDISM
  6. NEXIUM [Concomitant]
     Indication: IMPAIRED GASTRIC EMPTYING
  7. REGLAN [Concomitant]
     Indication: IMPAIRED GASTRIC EMPTYING
  8. LANTUS [Concomitant]
     Indication: DIABETES MELLITUS
  9. ADVAIR DISKUS 100/50 [Concomitant]
     Indication: ASTHMA
  10. SINGULAIR [Concomitant]
     Indication: ASTHMA
  11. PLAQUENIL [Concomitant]
     Indication: DRUG USE FOR UNKNOWN INDICATION
  12. CYMBALTA [Concomitant]
     Indication: DEPRESSION
  13. EFFEXOR [Concomitant]
     Indication: DEPRESSION
  14. LYRICA [Concomitant]
     Indication: NEUROPATHY PERIPHERAL

REACTIONS (9)
  - COGNITIVE DISORDER [None]
  - DEHYDRATION [None]
  - FUNGAL INFECTION [None]
  - INFLUENZA [None]
  - MALAISE [None]
  - PAIN [None]
  - PALLOR [None]
  - PSEUDOMONAS INFECTION [None]
  - PYREXIA [None]
